FAERS Safety Report 8295761-8 (Version None)
Quarter: 2012Q2

REPORT INFORMATION
  Report Type: 
  Country: None (occurrence: None)
  Receive Date: 20120416
  Receipt Date: 20120405
  Transmission Date: 20120825
  Serious: Yes (Other)
  Sender: FDA-Public Use
  Company Number: 2012SP018446

PATIENT
  Age: 24 Year
  Sex: Female
  Weight: 63 kg

DRUGS (1)
  1. DESLORATADINE [Suspect]
     Indication: FOOD ALLERGY
     Dosage: 5 MG; QD; PO
     Route: 048
     Dates: end: 20120316

REACTIONS (8)
  - GAIT DISTURBANCE [None]
  - FEELING ABNORMAL [None]
  - PALPITATIONS [None]
  - HEADACHE [None]
  - MUSCULOSKELETAL STIFFNESS [None]
  - VOMITING [None]
  - CHILLS [None]
  - EATING DISORDER [None]
